FAERS Safety Report 8590330-4 (Version None)
Quarter: 2012Q3

REPORT INFORMATION
  Report Type: 
  Country: None (occurrence: None)
  Receive Date: 20120813
  Receipt Date: 20120807
  Transmission Date: 20120928
  Serious: Yes (Hospitalization)
  Sender: FDA-Public Use
  Company Number: JP-JNJFOC-20120804621

PATIENT
  Age: 75 Year
  Sex: Female

DRUGS (3)
  1. DORIPENEM MONOHYDRATE [Suspect]
     Indication: PYELONEPHRITIS ACUTE
     Route: 042
     Dates: start: 20120721, end: 20120727
  2. CEFMETAZOLE SODIUM [Concomitant]
     Route: 065
     Dates: start: 20120714, end: 20120720
  3. LEVOFLOXACIN [Concomitant]
     Route: 065
     Dates: start: 20120721, end: 20120723

REACTIONS (1)
  - EOSINOPHILIC PNEUMONIA [None]
